FAERS Safety Report 7958914-1 (Version None)
Quarter: 2011Q4

REPORT INFORMATION
  Report Type: 
  Country: None (occurrence: None)
  Receive Date: 20111206
  Receipt Date: 20111128
  Transmission Date: 20120403
  Serious: Yes (Hospitalization)
  Sender: FDA-Public Use
  Company Number: US-ASTELLAS-2011US007911

PATIENT
  Sex: Female

DRUGS (2)
  1. ERLOTINIB HYDROCHLORIDE [Suspect]
     Indication: HEPATIC NEOPLASM MALIGNANT
     Dosage: 25 MG, UID/QD
     Route: 048
     Dates: start: 20090929, end: 20110915
  2. ERLOTINIB HYDROCHLORIDE [Suspect]
     Dosage: 75 MG, UID/QD
     Route: 048
     Dates: start: 20110401, end: 20111101

REACTIONS (5)
  - ADVERSE EVENT [None]
  - GAIT DISTURBANCE [None]
  - APHAGIA [None]
  - OFF LABEL USE [None]
  - ASTHENIA [None]
